FAERS Safety Report 8880190 (Version 1)
Quarter: 2012Q4

REPORT INFORMATION
  Report Type: 
  Country: US (occurrence: US)
  Receive Date: 20121031
  Receipt Date: 20121031
  Transmission Date: 20130627
  Serious: Yes (Hospitalization)
  Sender: FDA-Public Use
  Company Number: US-BAYER-2012-112496

PATIENT
  Age: 74 Year
  Sex: Female
  Weight: 61 kg

DRUGS (2)
  1. ALEVE CAPLET/TABLET,MIDOL EXTENDED RELIEF CAPLET [Suspect]
     Indication: BACK PAIN
     Dosage: bottle count 50s
     Route: 048
     Dates: start: 20121010, end: 20121022
  2. ANTIHYPERTENSIVES [Concomitant]

REACTIONS (3)
  - Gastric haemorrhage [None]
  - Gastric ulcer [None]
  - Loss of consciousness [None]
